FAERS Safety Report 9305400 (Version 1)
Quarter: 2013Q2

REPORT INFORMATION
  Report Type: Spontaneous
  Country: US (occurrence: US)
  Receive Date: 20130523
  Receipt Date: 20130523
  Transmission Date: 20140414
  Serious: Yes (Other)
  Sender: FDA-Public Use
  Company Number: US-SUN PHARMACEUTICAL INDUSTRIES LTD-2013SUN00625

PATIENT
  Sex: 0

DRUGS (1)
  1. CLOZAPINE 25 MG TABLETS [Suspect]
     Indication: SCHIZOPHRENIA, PARANOID TYPE
     Route: 065

REACTIONS (3)
  - Aura [Unknown]
  - Myoclonus [Unknown]
  - Fall [Unknown]
